FAERS Safety Report 7913786-6 (Version None)
Quarter: 2011Q4

REPORT INFORMATION
  Report Type: 
  Country: None (occurrence: None)
  Receive Date: 20111115
  Receipt Date: 20111104
  Transmission Date: 20120403
  Serious: Yes (Hospitalization)
  Sender: FDA-Public Use
  Company Number: ES-BRISTOL-MYERS SQUIBB COMPANY-16221913

PATIENT
  Age: 71 Year

DRUGS (5)
  1. ESCITALOPRAM [Concomitant]
     Indication: DEPRESSION
     Dates: start: 20080401
  2. ATORVASTATIN [Concomitant]
     Indication: HYPERLIPIDAEMIA
     Route: 048
     Dates: start: 20060101
  3. ASPIRIN [Concomitant]
     Indication: CARDIOVASCULAR EVENT PROPHYLAXIS
     Route: 048
     Dates: start: 20080701
  4. METFORMIN HCL [Concomitant]
     Indication: DIABETES MELLITUS
     Dates: start: 20100101
  5. ABILIFY [Suspect]
     Indication: DEPRESSION
     Dosage: 29DEC2010-14JAN2011. 14JAN2011-18JAN2011.
     Route: 048
     Dates: start: 20101229, end: 20110118

REACTIONS (1)
  - CONFUSIONAL STATE [None]
